FAERS Safety Report 4495359-3 (Version None)
Quarter: 2004Q4

REPORT INFORMATION
  Report Type: 
  Country: None (occurrence: None)
  Receive Date: 20041103
  Receipt Date: 20041018
  Transmission Date: 20050328
  Serious: Yes (Death)
  Sender: FDA-Public Use
  Company Number: 210098

PATIENT
  Age: 75 Year
  Sex: Male

DRUGS (2)
  1. AVASTIN [Suspect]
     Indication: RENAL CELL CARCINOMA STAGE UNSPECIFIED
     Dosage: 10 MG/KG, Q2W, INTRAVENOUS
     Route: 042
     Dates: start: 20040712, end: 20040908
  2. INTERFERON ALFA-2B (INTERFERON ALFA-2B) [Suspect]
     Indication: RENAL CELL CARCINOMA STAGE UNSPECIFIED
     Dosage: 9 MIU, X3, SUBCUTANEOUS
     Route: 058
     Dates: start: 20040712, end: 20040908

REACTIONS (2)
  - CARDIAC DISORDER [None]
  - SUDDEN DEATH [None]
